FAERS Safety Report 24835779 (Version 1)
Quarter: 2025Q1

REPORT INFORMATION
  Report Type: Spontaneous
  Country: US (occurrence: US)
  Receive Date: 20250113
  Receipt Date: 20250113
  Transmission Date: 20250409
  Serious: No
  Sender: RECORDATI
  Company Number: US-RECORDATI RARE DISEASE INC.-2024005978

PATIENT

DRUGS (3)
  1. OSILODROSTAT [Suspect]
     Active Substance: OSILODROSTAT
     Indication: Product used for unknown indication
  2. OSILODROSTAT [Suspect]
     Active Substance: OSILODROSTAT
     Dosage: 1 MG, BID
  3. OSILODROSTAT [Suspect]
     Active Substance: OSILODROSTAT

REACTIONS (2)
  - Hemiparesis [Recovered/Resolved]
  - Off label use [Recovered/Resolved]
